FAERS Safety Report 10241020 (Version 8)
Quarter: 2014Q4

REPORT INFORMATION
  Report Type: Report from Study
  Country: GB (occurrence: GB)
  Receive Date: 20140617
  Receipt Date: 20141218
  Transmission Date: 20150528
  Serious: Yes (Hospitalization, Other)
  Sender: FDA-Public Use
  Company Number: GB-MPIJNJ-2014JNJ000903

PATIENT

DRUGS (23)
  1. PARACETAMOL [Concomitant]
     Active Substance: ACETAMINOPHEN
     Dosage: UNK
     Dates: start: 20140210
  2. METOCLOPRAMIDE. [Concomitant]
     Active Substance: METOCLOPRAMIDE
     Indication: NAUSEA
     Dosage: 10 MG, TID
     Route: 048
     Dates: start: 20140317
  3. RITUXIMAB [Suspect]
     Active Substance: RITUXIMAB
     Indication: DIFFUSE LARGE B-CELL LYMPHOMA
     Dosage: 600 MG, UNK
     Route: 065
     Dates: start: 20140210, end: 20140321
  4. ACYCLOVIR                          /00587301/ [Concomitant]
     Active Substance: ACYCLOVIR
     Indication: ANTIVIRAL PROPHYLAXIS
     Dosage: 200 MG, TID
     Route: 048
     Dates: start: 20140210
  5. CYCLOPHOSPHAMIDE. [Suspect]
     Active Substance: CYCLOPHOSPHAMIDE
     Dosage: 1200 MG, UNK
     Route: 065
     Dates: end: 20140321
  6. DOXORUBICIN [Suspect]
     Active Substance: DOXORUBICIN
     Indication: DIFFUSE LARGE B-CELL LYMPHOMA
     Dosage: 88 UNK, UNK
     Route: 065
     Dates: start: 20140210, end: 20140228
  7. COTRIMOXAZOLE [Concomitant]
     Active Substance: SULFAMETHOXAZOLE\TRIMETHOPRIM
     Indication: ANTIBIOTIC PROPHYLAXIS
     Dosage: 960 MG, QD
     Route: 048
     Dates: start: 20140210
  8. DIFFLAM [Concomitant]
     Active Substance: BENZYDAMINE HYDROCHLORIDE
     Indication: STOMATITIS
     Dosage: 5 ML, QID
     Route: 048
     Dates: start: 20140210
  9. POLYETHYLENE GLYCOL [Concomitant]
     Active Substance: POLYETHYLENE GLYCOLS
  10. VELCADE [Suspect]
     Active Substance: BORTEZOMIB
     Dosage: 2.1 MG, UNK
     Route: 065
     Dates: end: 20140328
  11. PREDNISOLONE. [Suspect]
     Active Substance: PREDNISOLONE
     Indication: DIFFUSE LARGE B-CELL LYMPHOMA
     Dosage: 100 MG, UNK
     Route: 065
     Dates: start: 20140210, end: 20140325
  12. ALLOPURINOL. [Concomitant]
     Active Substance: ALLOPURINOL
     Indication: METABOLIC DISORDER
     Dosage: 300 MG, QD
     Route: 048
     Dates: start: 20140210, end: 20140301
  13. FLUCONAZOLE. [Concomitant]
     Active Substance: FLUCONAZOLE
     Indication: ANTIFUNGAL PROPHYLAXIS
     Dosage: 50 MG, BID
     Route: 048
     Dates: start: 20140210
  14. GLYCERIN                           /00200601/ [Concomitant]
     Dosage: 4 MG, UNK
     Route: 050
     Dates: start: 20140331
  15. RITUXIMAB [Suspect]
     Active Substance: RITUXIMAB
     Dosage: 660 UNK, UNK
  16. DOXORUBICIN [Suspect]
     Active Substance: DOXORUBICIN
     Dosage: 80 UNK, UNK
  17. VINCRISTINE [Suspect]
     Active Substance: VINCRISTINE
     Indication: DIFFUSE LARGE B-CELL LYMPHOMA
     Dosage: 2 MG, UNK
     Route: 065
     Dates: start: 20140210, end: 20140321
  18. OMEPRAZOLE. [Concomitant]
     Active Substance: OMEPRAZOLE
     Indication: ANTACID THERAPY
     Dosage: 20 MG, QD
     Route: 048
     Dates: start: 20140210
  19. VELCADE [Suspect]
     Active Substance: BORTEZOMIB
     Indication: DIFFUSE LARGE B-CELL LYMPHOMA
     Dosage: 2.3 MG, UNK
     Route: 065
     Dates: start: 20140228, end: 20140307
  20. CYCLOPHOSPHAMIDE. [Suspect]
     Active Substance: CYCLOPHOSPHAMIDE
     Indication: DIFFUSE LARGE B-CELL LYMPHOMA
     Dosage: 1320 MG, UNK
     Route: 065
     Dates: start: 20140210, end: 20140228
  21. DOMPERIDONE [Suspect]
     Active Substance: DOMPERIDONE
     Indication: ANTIEMETIC SUPPORTIVE CARE
     Dosage: 20 MG, TID
     Route: 048
     Dates: start: 20140210
  22. HALOPERIDOL. [Concomitant]
     Active Substance: HALOPERIDOL
     Indication: SEDATION
     Dosage: 1.5 MG, QD
     Route: 048
     Dates: start: 20140317
  23. DOCUSATE SODIUM. [Concomitant]
     Active Substance: DOCUSATE SODIUM
     Dosage: UNK
     Dates: start: 20140331

REACTIONS (6)
  - Constipation [Recovered/Resolved with Sequelae]
  - Pyrexia [Recovered/Resolved]
  - Constipation [Recovered/Resolved]
  - Febrile neutropenia [Recovered/Resolved]
  - Duodenal stenosis [Recovered/Resolved]
  - Vomiting [Not Recovered/Not Resolved]

NARRATIVE: CASE EVENT DATE: 20140219
